FAERS Safety Report 6248846-1 (Version None)
Quarter: 2009Q2

REPORT INFORMATION
  Report Type: 
  Country: None (occurrence: None)
  Receive Date: 20090629
  Receipt Date: 20090525
  Transmission Date: 20091009
  Serious: Yes (Hospitalization, Other)
  Sender: FDA-Public Use
  Company Number: US-PFIZER INC-2009180805

PATIENT
  Sex: Female
  Weight: 72 kg

DRUGS (10)
  1. CHANTIX [Suspect]
     Indication: SMOKING CESSATION THERAPY
     Dosage: 0.5 MG, 2X/DAY
     Dates: start: 20090305, end: 20090101
  2. NICOTROL [Suspect]
     Indication: SMOKING CESSATION THERAPY
     Dosage: UNK
     Dates: start: 20090101, end: 20090101
  3. METFORMIN HYDROCHLORIDE [Concomitant]
     Dosage: UNK
  4. LITHIUM CARBONATE [Concomitant]
     Dosage: UNK
  5. QUETIAPINE FUMARATE [Concomitant]
     Dosage: UNK
  6. TRAZODONE HYDROCHLORIDE [Concomitant]
     Indication: SLEEP DISORDER
     Dosage: UNK
  7. ALPRAZOLAM [Concomitant]
     Dosage: UNK
  8. SIMVASTATIN [Concomitant]
     Indication: BLOOD CHOLESTEROL INCREASED
     Dosage: UNK
  9. DIPHENOXYLATE HCL AND ATROPINE SULFATE [Concomitant]
     Dosage: UNK
  10. CYCLOBENZAPRINE [Concomitant]
     Dosage: UNK

REACTIONS (3)
  - BIPOLAR DISORDER [None]
  - COMPLEX PARTIAL SEIZURES [None]
  - MANIA [None]
